FAERS Safety Report 12788205 (Version 2)
Quarter: 2016Q3

REPORT INFORMATION
  Report Type: Report from Study
  Country: IT (occurrence: IT)
  Receive Date: 20160928
  Receipt Date: 20160930
  Transmission Date: 20161109
  Serious: Yes (Other)
  Sender: FDA-Public Use
  Company Number: IT-CELGENEUS-ITA-2016093519

PATIENT
  Age: 63 Year
  Sex: Female

DRUGS (3)
  1. CORTISONE [Concomitant]
     Active Substance: CORTISONE\HYDROCORTISONE
     Indication: PRODUCT USED FOR UNKNOWN INDICATION
     Route: 065
  2. REVLIMID [Suspect]
     Active Substance: LENALIDOMIDE
     Indication: PLASMA CELL MYELOMA
     Route: 048
  3. CARDIOASPIRIN [Concomitant]
     Active Substance: ASPIRIN
     Indication: PRODUCT USED FOR UNKNOWN INDICATION
     Route: 065

REACTIONS (3)
  - Asthenia [Recovered/Resolved]
  - Gingival bleeding [Recovered/Resolved]
  - Haemoglobin decreased [Recovered/Resolved]

NARRATIVE: CASE EVENT DATE: 2014
